FAERS Safety Report 6508159-7 (Version None)
Quarter: 2009Q4

REPORT INFORMATION
  Report Type: 
  Country: None (occurrence: None)
  Receive Date: 20091221
  Receipt Date: 20081210
  Transmission Date: 20100525
  Serious: No
  Sender: FDA-Public Use
  Company Number: US-ASTRAZENECA-2008UW27676

PATIENT
  Age: 76 Year
  Sex: Female
  Weight: 86.2 kg

DRUGS (2)
  1. CRESTOR [Suspect]
     Indication: BLOOD CHOLESTEROL INCREASED
     Route: 048
  2. METOPROLOL TARTRATE [Concomitant]
     Route: 048
     Dates: start: 20080901

REACTIONS (1)
  - MUSCLE SPASMS [None]
